FAERS Safety Report 8374688-7 (Version None)
Quarter: 2012Q2

REPORT INFORMATION
  Report Type: 
  Country: None (occurrence: None)
  Receive Date: 20120521
  Receipt Date: 20111025
  Transmission Date: 20120825
  Serious: No
  Sender: FDA-Public Use
  Company Number: US-ASTRAZENECA-2011SE72693

PATIENT
  Sex: Female

DRUGS (9)
  1. METOPROLOL TARTRATE [Concomitant]
  2. OPRECLIN [Concomitant]
  3. VITAMIN D [Concomitant]
  4. PAROXETINE HCL [Concomitant]
  5. PRILOSEC OTC [Suspect]
     Route: 048
     Dates: start: 20111021
  6. DILTIAZEM [Concomitant]
  7. AMLODIPINE BESYLATE [Concomitant]
  8. ASPIRIN [Concomitant]
  9. CODEINE SULFATE [Concomitant]
     Indication: PRODUCT USED FOR UNKNOWN INDICATION

REACTIONS (4)
  - MUSCULOSKELETAL PAIN [None]
  - HYPERHIDROSIS [None]
  - NECK PAIN [None]
  - MUSCULOSKELETAL STIFFNESS [None]
